FAERS Safety Report 10008089 (Version 2)
Quarter: 2014Q1

REPORT INFORMATION
  Report Type: Spontaneous
  Country: US (occurrence: US)
  Receive Date: 20140313
  Receipt Date: 20140313
  Transmission Date: 20141002
  Serious: Yes (Hospitalization)
  Sender: FDA-Public Use
  Company Number: US-GILEAD-2012-0056853

PATIENT
  Age: 76 Year
  Sex: Female

DRUGS (4)
  1. LETAIRIS [Suspect]
     Indication: PULMONARY HYPERTENSION
     Dosage: 10 MG, UNK
     Route: 048
     Dates: start: 20091006
  2. LETAIRIS [Suspect]
     Indication: DIASTOLIC DYSFUNCTION
  3. LETAIRIS [Suspect]
     Indication: SLEEP APNOEA SYNDROME
  4. LETAIRIS [Suspect]
     Indication: PICKWICKIAN SYNDROME

REACTIONS (1)
  - Fluid overload [Not Recovered/Not Resolved]
